FAERS Safety Report 12084268 (Version 1)
Quarter: 2016Q1

REPORT INFORMATION
  Report Type: Spontaneous
  Country: US (occurrence: None)
  Receive Date: 20160216
  Receipt Date: 20160216
  Transmission Date: 20160526
  Serious: Yes (Hospitalization)
  Sender: FDA-Public Use
  Company Number: None

PATIENT
  Age: 67 Year
  Sex: Male
  Weight: 111.13 kg

DRUGS (14)
  1. WARFARIN [Concomitant]
     Active Substance: WARFARIN
  2. COREG [Concomitant]
     Active Substance: CARVEDILOL
  3. SLOW MAG. [Concomitant]
  4. GEMFIBROZIL. [Concomitant]
     Active Substance: GEMFIBROZIL
  5. VITAMIN D [Concomitant]
     Active Substance: CHOLECALCIFEROL
  6. ISOVUE [Suspect]
     Active Substance: IOPAMIDOL
     Indication: SCAN WITH CONTRAST
     Dates: start: 20160212
  7. ALLOPURINOL. [Concomitant]
     Active Substance: ALLOPURINOL
  8. FISH OIL [Concomitant]
     Active Substance: FISH OIL
  9. ISOVUE [Suspect]
     Active Substance: IOPAMIDOL
     Indication: COMPUTERISED TOMOGRAM HEAD
     Dates: start: 20160212
  10. VALSARTAN HCTZ [Concomitant]
     Active Substance: HYDROCHLOROTHIAZIDE\VALSARTAN
  11. MULTIVITAMIN [Concomitant]
     Active Substance: VITAMINS
  12. ICD DEFIBRILLATOR [Concomitant]
  13. DIGITEK [Concomitant]
     Active Substance: DIGOXIN
  14. FLONASE [Concomitant]
     Active Substance: FLUTICASONE PROPIONATE

REACTIONS (2)
  - Chest pain [None]
  - Perianal erythema [None]

NARRATIVE: CASE EVENT DATE: 20160212
